FAERS Safety Report 8810648 (Version 1)
Quarter: 2012Q4

REPORT INFORMATION
  Report Type: Spontaneous
  Country: US (occurrence: None)
  Receive Date: 20120924
  Receipt Date: 20120924
  Transmission Date: 20130627
  Serious: Yes (Other)
  Sender: FDA-Public Use
  Company Number: None

PATIENT
  Sex: Female
  Weight: 72.58 kg

DRUGS (1)
  1. FLUOXETINE 20 MG, CAP [Suspect]
     Indication: PREMENSTRUAL SYNDROME
     Dosage: 20 mg once per day oral
2 yrs.
     Route: 048

REACTIONS (13)
  - Anxiety [None]
  - Nervousness [None]
  - Suicidal ideation [None]
  - Hyperhidrosis [None]
  - Initial insomnia [None]
  - Confusional state [None]
  - Disturbance in attention [None]
  - Hyperreflexia [None]
  - Aggression [None]
  - Impulsive behaviour [None]
  - Hostility [None]
  - Tremor [None]
  - Quality of life decreased [None]
